FAERS Safety Report 16837537 (Version 1)
Quarter: 2019Q3

REPORT INFORMATION
  Report Type: Spontaneous
  Country: US (occurrence: US)
  Receive Date: 20190923
  Receipt Date: 20190923
  Transmission Date: 20191005
  Serious: No
  Sender: FDA-Public Use
  Company Number: US-ASTRAZENECA-2019SF29161

PATIENT
  Age: 49 Year
  Sex: Female
  Weight: 66.4 kg

DRUGS (6)
  1. BYDUREON BCISE [Suspect]
     Active Substance: EXENATIDE
     Indication: TYPE 2 DIABETES MELLITUS
     Route: 058
     Dates: start: 201908
  2. HUMULIN R [Concomitant]
     Active Substance: INSULIN HUMAN
     Route: 058
  3. HUMULIN R [Concomitant]
     Active Substance: INSULIN HUMAN
     Route: 058
  4. METFORMIN [Concomitant]
     Active Substance: METFORMIN HYDROCHLORIDE
  5. HUMULIN N [Concomitant]
     Active Substance: INSULIN HUMAN
     Route: 058
  6. HUMULIN N [Concomitant]
     Active Substance: INSULIN HUMAN
     Dosage: 50 UNITS IN MORNING AND 42 UNITS AT NIGHT
     Route: 058

REACTIONS (3)
  - Device issue [Unknown]
  - Injection site haemorrhage [Recovered/Resolved]
  - Blood glucose decreased [Not Recovered/Not Resolved]

NARRATIVE: CASE EVENT DATE: 2019
